FAERS Safety Report 9351120 (Version 3)
Quarter: 2014Q1

REPORT INFORMATION
  Report Type: Spontaneous
  Country: US (occurrence: US)
  Receive Date: 20130617
  Receipt Date: 20140327
  Transmission Date: 20141002
  Serious: Yes (Death, Hospitalization)
  Sender: FDA-Public Use
  Company Number: US-INCYTE CORPORATION-2013IN001244

PATIENT
  Sex: Female

DRUGS (9)
  1. JAKAFI [Suspect]
     Indication: MYELOFIBROSIS
     Dosage: 25 MG, BID
     Route: 048
     Dates: start: 20130529
  2. JAKAFI [Suspect]
     Dosage: 25 MG, BID
     Route: 048
     Dates: start: 20130606, end: 201403
  3. COUMADIN                           /00014802/ [Concomitant]
  4. VITAMIN B [Concomitant]
  5. IRON [Concomitant]
  6. LUTEIN                             /01638501/ [Concomitant]
  7. FOLIC ACID [Concomitant]
  8. TYLENOL                            /00020001/ [Concomitant]
  9. CALTRATE                           /00944201/ [Concomitant]

REACTIONS (2)
  - Death [Fatal]
  - Hospitalisation [Unknown]
